FAERS Safety Report 25127696 (Version 1)
Quarter: 2025Q1

REPORT INFORMATION
  Report Type: Spontaneous
  Country: JP (occurrence: JP)
  Receive Date: 20250327
  Receipt Date: 20250327
  Transmission Date: 20250408
  Serious: Yes (Hospitalization)
  Sender: UNITED THERAPEUTICS
  Company Number: JP-UNITED THERAPEUTICS-UNT-2024-041013

PATIENT
  Age: 4 Year
  Sex: Female

DRUGS (5)
  1. UNITUXIN [Suspect]
     Active Substance: DINUTUXIMAB
     Indication: Neuroblastoma
     Route: 041
  2. UNITUXIN [Suspect]
     Active Substance: DINUTUXIMAB
     Route: 041
  3. FILGRASTIM [Suspect]
     Active Substance: FILGRASTIM
     Indication: Product used for unknown indication
  4. FILGRASTIM [Suspect]
     Active Substance: FILGRASTIM
  5. FILGRASTIM [Suspect]
     Active Substance: FILGRASTIM

REACTIONS (5)
  - Eyelid ptosis [Recovered/Resolved]
  - IIIrd nerve disorder [Recovered/Resolved]
  - Bladder disorder [Recovered/Resolved]
  - Anorectal disorder [Recovered/Resolved]
  - Tremor [Recovered/Resolved]

NARRATIVE: CASE EVENT DATE: 20241209
